FAERS Safety Report 8109983-X (Version None)
Quarter: 2012Q1

REPORT INFORMATION
  Report Type: 
  Country: None (occurrence: None)
  Receive Date: 20120202
  Receipt Date: 20120123
  Transmission Date: 20120608
  Serious: No
  Sender: FDA-Public Use
  Company Number: US-AMGEN-USASP2011041259

PATIENT
  Age: 49 Year
  Sex: Female
  Weight: 104.31 kg

DRUGS (3)
  1. PLAQUENIL [Concomitant]
     Dosage: 2 MG, UNK
     Dates: start: 20100301
  2. ENBREL [Suspect]
     Indication: RHEUMATOID ARTHRITIS
     Dosage: 50 MG, QWK
     Dates: start: 20110607, end: 20110801
  3. METHOTREXATE [Concomitant]
     Dosage: 25 MG, QWK
     Route: 048
     Dates: start: 20100811

REACTIONS (4)
  - DRUG HYPERSENSITIVITY [None]
  - UPPER RESPIRATORY TRACT INFECTION [None]
  - SINUSITIS [None]
  - VOMITING [None]
